FAERS Safety Report 7731371-6 (Version None)
Quarter: 2011Q3

REPORT INFORMATION
  Report Type: 
  Country: None (occurrence: None)
  Receive Date: 20110906
  Receipt Date: 20110901
  Transmission Date: 20111222
  Serious: Yes (Hospitalization)
  Sender: FDA-Public Use
  Company Number: MX-PFIZER INC-2011197802

PATIENT
  Age: 42 Year
  Sex: Male
  Weight: 62 kg

DRUGS (2)
  1. LANSOPRAZOL [Concomitant]
     Indication: GASTRITIS
     Dosage: 15 MG, UNK
     Route: 048
     Dates: start: 20110112
  2. VARENICLINE TARTRATE [Suspect]
     Indication: SMOKING CESSATION THERAPY
     Dosage: 0.5 MG, 1X/DAY
     Route: 048
     Dates: start: 20110507, end: 20110507

REACTIONS (6)
  - TACHYCARDIA [None]
  - HYPERTENSION [None]
  - DYSPNOEA [None]
  - PRURITUS [None]
  - HEADACHE [None]
  - BLISTER [None]
